FAERS Safety Report 19075787 (Version 1)
Quarter: 2021Q1

REPORT INFORMATION
  Report Type: Spontaneous
  Country: PT (occurrence: PT)
  Receive Date: 20210330
  Receipt Date: 20210330
  Transmission Date: 20210420
  Serious: Yes (Other)
  Sender: FDA-Public Use
  Company Number: PT-GILEAD-2021-0522484

PATIENT
  Age: 41 Year
  Sex: Female

DRUGS (2)
  1. DOLUTEGRAVIR [Concomitant]
     Active Substance: DOLUTEGRAVIR
  2. TRUVADA [Suspect]
     Active Substance: EMTRICITABINE\TENOFOVIR DISOPROXIL FUMARATE
     Indication: HIV INFECTION
     Dosage: 245MG/200MG, QD
     Route: 065
     Dates: start: 2019

REACTIONS (6)
  - Hepatitis B DNA increased [Unknown]
  - Drug ineffective [Unknown]
  - Treatment noncompliance [Unknown]
  - Abortion induced [Recovered/Resolved]
  - Blood HIV RNA increased [Unknown]
  - Maternal exposure during pregnancy [Recovered/Resolved]
